FAERS Safety Report 9717236 (Version 2)
Quarter: 2013Q4

REPORT INFORMATION
  Report Type: Spontaneous
  Country: US (occurrence: US)
  Receive Date: 20131127
  Receipt Date: 20131217
  Transmission Date: 20140711
  Serious: Yes (Hospitalization, Other)
  Sender: FDA-Public Use
  Company Number: US-PFIZER INC-2013335390

PATIENT
  Age: 68 Year
  Sex: Female

DRUGS (1)
  1. VFEND [Suspect]
     Dosage: 200 MG, BID

REACTIONS (2)
  - Leukaemia [Unknown]
  - Pneumonia fungal [Unknown]
